FAERS Safety Report 9463582 (Version 1)
Quarter: 2013Q3

REPORT INFORMATION
  Report Type: Spontaneous
  Country: US (occurrence: None)
  Receive Date: 20130815
  Receipt Date: 20130815
  Transmission Date: 20140515
  Serious: Yes (Other)
  Sender: FDA-Public Use
  Company Number: None

PATIENT
  Age: 71 Year
  Sex: Male

DRUGS (1)
  1. TRAMADOL [Suspect]
     Indication: PAIN
     Dosage: 50 MG PRN  PO
     Route: 048
     Dates: start: 20130115, end: 20130719

REACTIONS (1)
  - Convulsion [None]
